FAERS Safety Report 13822850 (Version 1)
Quarter: 2017Q3

REPORT INFORMATION
  Report Type: Spontaneous
  Country: US (occurrence: US)
  Receive Date: 20170801
  Receipt Date: 20170801
  Transmission Date: 20171127
  Serious: Yes (Other)
  Sender: FDA-Public Use
  Company Number: US-TEVA-792077USA

PATIENT
  Age: 31 Year
  Sex: Male

DRUGS (3)
  1. LOPERAMIDE [Suspect]
     Active Substance: LOPERAMIDE
     Indication: COLITIS ULCERATIVE
     Dosage: 2MG
     Route: 065
  2. LOPERAMIDE [Suspect]
     Active Substance: LOPERAMIDE
     Indication: DRUG USE DISORDER
     Dosage: 100 PILLS OF 2MG OVER LAST 36 HOURS
     Route: 065
  3. MESALAZINE [Concomitant]
     Active Substance: MESALAMINE
     Indication: COLITIS ULCERATIVE
     Dosage: 1000MG
     Route: 065

REACTIONS (10)
  - Conduction disorder [Recovered/Resolved]
  - Syncope [Recovered/Resolved]
  - Toxicity to various agents [Recovered/Resolved]
  - Atrioventricular block first degree [Recovered/Resolved]
  - Electrocardiogram QT prolonged [Recovered/Resolved]
  - Electrocardiogram QRS complex prolonged [Recovered/Resolved]
  - Torsade de pointes [Recovered/Resolved]
  - Bundle branch block left [Recovered/Resolved]
  - Electrocardiogram T wave inversion [Recovered/Resolved]
  - Drug abuse [Recovered/Resolved]
